FAERS Safety Report 6674655-5 (Version None)
Quarter: 2010Q1

REPORT INFORMATION
  Report Type: 
  Country: None (occurrence: None)
  Receive Date: 20100329
  Receipt Date: 20090603
  Transmission Date: 20100710
  Serious: Yes (Other)
  Sender: FDA-Public Use
  Company Number: 2009184543

PATIENT
  Sex: Female

DRUGS (1)
  1. GEODON (ZIPRASIDONE HCL) UNKNOWN [Suspect]

REACTIONS (6)
  - AMENORRHOEA [None]
  - FEELING ABNORMAL [None]
  - OVERDOSE [None]
  - SYNCOPE [None]
  - VISION BLURRED [None]
  - VISUAL ACUITY REDUCED [None]
